FAERS Safety Report 8851903 (Version 3)
Quarter: 2014Q4

REPORT INFORMATION
  Report Type: Report from Study
  Country: AR (occurrence: AR)
  Receive Date: 20121022
  Receipt Date: 20141017
  Transmission Date: 20150529
  Serious: Yes (Death, Other)
  Sender: FDA-Public Use
  Company Number: PHHY2012AR093557

PATIENT
  Age: 61 Year
  Sex: Male

DRUGS (2)
  1. DIOVAN D [Suspect]
     Active Substance: HYDROCHLOROTHIAZIDE\VALSARTAN
     Indication: HYPERTENSION
     Dosage: 2 DF, QD (DAILY)
     Route: 048
     Dates: end: 201305
  2. SINTROM [Suspect]
     Active Substance: ACENOCOUMAROL
     Indication: BLOOD DISORDER
     Dosage: 0.25 DF, QD (DAILY)
     Route: 065

REACTIONS (5)
  - Thrombosis [Unknown]
  - Blood cholesterol abnormal [Unknown]
  - Cerebrovascular accident [Fatal]
  - Diabetes mellitus [Not Recovered/Not Resolved]
  - Blood uric acid abnormal [Unknown]

NARRATIVE: CASE EVENT DATE: 201208
